FAERS Safety Report 15691124 (Version 3)
Quarter: 2019Q1

REPORT INFORMATION
  Report Type: Spontaneous
  Country: ES (occurrence: ES)
  Receive Date: 20181205
  Receipt Date: 20190118
  Transmission Date: 20190417
  Serious: Yes (Other)
  Sender: FDA-Public Use
  Company Number: PHHY2018ES171662

PATIENT
  Age: 16 Year
  Sex: Male

DRUGS (5)
  1. CANESTEN [Interacting]
     Active Substance: CLOTRIMAZOLE
     Indication: FUNGAL INFECTION
     Dosage: UNK
     Route: 065
  2. LOJUXTA [Suspect]
     Active Substance: LOMITAPIDE MESYLATE
     Indication: TYPE IIA HYPERLIPIDAEMIA
     Dosage: 30 MG, UNK
     Route: 048
  3. EZETIMIBE. [Concomitant]
     Active Substance: EZETIMIBE
     Indication: PRODUCT USED FOR UNKNOWN INDICATION
     Dosage: 10 MG, UNK
     Route: 065
  4. ROSUVASTATIN. [Suspect]
     Active Substance: ROSUVASTATIN
     Indication: PRODUCT USED FOR UNKNOWN INDICATION
     Dosage: 5 MG, UNK
     Route: 048
  5. LOJUXTA [Suspect]
     Active Substance: LOMITAPIDE MESYLATE
     Dosage: 60 MG, UNK
     Route: 048

REACTIONS (5)
  - Blood test abnormal [Unknown]
  - Product administered to patient of inappropriate age [Unknown]
  - Drug interaction [Unknown]
  - Liver function test increased [Recovered/Resolved]
  - Fungal infection [Unknown]

NARRATIVE: CASE EVENT DATE: 201809
